FAERS Safety Report 18109123 (Version 2)
Quarter: 2020Q3

REPORT INFORMATION
  Report Type: Spontaneous
  Country: CN (occurrence: CN)
  Receive Date: 20200804
  Receipt Date: 20200824
  Transmission Date: 20201103
  Serious: Yes (Death, Other)
  Sender: FDA-Public Use
  Company Number: CN-009507513-2007CHN011236

PATIENT
  Age: 55 Year
  Sex: Male

DRUGS (1)
  1. KEYTRUDA [Suspect]
     Active Substance: PEMBROLIZUMAB
     Indication: NON-SMALL CELL LUNG CANCER STAGE IV
     Dosage: 100 MG/BODYWEIGHT, ONCE EVERY THREE WEEKS
     Dates: start: 20190731, end: 202001

REACTIONS (4)
  - Haemoptysis [Fatal]
  - Pulmonary cavitation [Not Recovered/Not Resolved]
  - Immune-mediated pneumonitis [Not Recovered/Not Resolved]
  - Incorrect dose administered [Unknown]

NARRATIVE: CASE EVENT DATE: 20190731
